FAERS Safety Report 7830304-1 (Version None)
Quarter: 2011Q4

REPORT INFORMATION
  Report Type: 
  Country: None (occurrence: None)
  Receive Date: 20111021
  Receipt Date: 20111012
  Transmission Date: 20120403
  Serious: Yes (Other)
  Sender: FDA-Public Use
  Company Number: US-JNJFOC-20111005478

PATIENT
  Age: 47 Year
  Sex: Female

DRUGS (5)
  1. REMICADE [Suspect]
     Indication: COLITIS ULCERATIVE
     Route: 042
     Dates: start: 20111012
  2. BENADRYL [Concomitant]
     Indication: PREMEDICATION
     Route: 048
  3. REMICADE [Suspect]
     Route: 042
     Dates: start: 20111012, end: 20111012
  4. REMICADE [Suspect]
     Route: 042
     Dates: start: 20100501
  5. SOLU-MEDROL [Concomitant]
     Indication: PREMEDICATION
     Route: 042

REACTIONS (6)
  - THROAT TIGHTNESS [None]
  - SKIN TIGHTNESS [None]
  - OEDEMA PERIPHERAL [None]
  - INFUSION RELATED REACTION [None]
  - ERYTHEMA [None]
  - ADVERSE EVENT [None]
